FAERS Safety Report 19460562 (Version 1)
Quarter: 2021Q2

REPORT INFORMATION
  Report Type: Spontaneous
  Country: GB (occurrence: GB)
  Receive Date: 20210625
  Receipt Date: 20210625
  Transmission Date: 20210717
  Serious: Yes (Disabling)
  Sender: FDA-Public Use
  Company Number: GB-TEVA-2021-GB-1924745

PATIENT
  Age: 90 Year
  Sex: Female

DRUGS (8)
  1. APIXABAN [Concomitant]
     Active Substance: APIXABAN
     Indication: ILL-DEFINED DISORDER
  2. ATORVASTATIN [Concomitant]
     Active Substance: ATORVASTATIN
     Indication: ILL-DEFINED DISORDER
  3. CALCICHEW [Concomitant]
     Active Substance: CALCIUM CARBONATE
     Indication: ILL-DEFINED DISORDER
  4. LAXIDO [Concomitant]
     Active Substance: POLYETHYLENE GLYCOL 3350\POTASSIUM CHLORIDE\SODIUM BICARBONATE\SODIUM CHLORIDE
     Indication: ILL-DEFINED DISORDER
  5. ATENOLOL. [Concomitant]
     Active Substance: ATENOLOL
     Indication: ILL-DEFINED DISORDER
  6. LINAGLIPTIN [Concomitant]
     Active Substance: LINAGLIPTIN
     Indication: ILL-DEFINED DISORDER
  7. LISINOPRIL ANHYDROUS [Concomitant]
     Active Substance: LISINOPRIL
     Indication: ILL-DEFINED DISORDER
  8. IMATINIB MESILATE [Suspect]
     Active Substance: IMATINIB MESYLATE
     Indication: CHRONIC MYELOID LEUKAEMIA
     Dosage: 400 MG
     Route: 048
     Dates: start: 20200909, end: 20201117

REACTIONS (4)
  - Pericardial effusion [Unknown]
  - Pulmonary arterial hypertension [Recovered/Resolved with Sequelae]
  - Left ventricular hypertrophy [Recovered/Resolved with Sequelae]
  - Cardiomyopathy [Recovered/Resolved with Sequelae]

NARRATIVE: CASE EVENT DATE: 20201010
